FAERS Safety Report 9444832 (Version 1)
Quarter: 2013Q3

REPORT INFORMATION
  Report Type: Spontaneous
  Country: RS (occurrence: RS)
  Receive Date: 20130807
  Receipt Date: 20130807
  Transmission Date: 20140515
  Serious: Yes (Hospitalization)
  Sender: FDA-Public Use
  Company Number: RS-JNJFOC-20130716690

PATIENT
  Age: 29 Year
  Sex: Male

DRUGS (2)
  1. RISPOLEPT CONSTA [Suspect]
     Indication: ACUTE PSYCHOSIS
     Route: 030
     Dates: start: 2011
  2. RISPOLEPT CONSTA [Suspect]
     Indication: ACUTE PSYCHOSIS
     Route: 030
     Dates: start: 20120821, end: 20130620

REACTIONS (1)
  - Aggression [Recovered/Resolved]
